FAERS Safety Report 13467498 (Version 1)
Quarter: 2017Q2

REPORT INFORMATION
  Report Type: Spontaneous
  Country: US (occurrence: US)
  Receive Date: 20170421
  Receipt Date: 20170421
  Transmission Date: 20170830
  Serious: Yes (Hospitalization)
  Sender: FDA-Public Use
  Company Number: US-SA-2017SA073245

PATIENT
  Age: 43 Year
  Sex: Male

DRUGS (1)
  1. CEREZYME [Suspect]
     Active Substance: IMIGLUCERASE
     Indication: GAUCHER^S DISEASE
     Dosage: DOSE:5200 UNIT(S)
     Route: 041
     Dates: start: 20120112

REACTIONS (1)
  - Wound [Unknown]

NARRATIVE: CASE EVENT DATE: 20170405
